FAERS Safety Report 7893771 (Version 6)
Quarter: 2014Q2

REPORT INFORMATION
  Report Type: Spontaneous
  Country: US (occurrence: US)
  Receive Date: 20110411
  Receipt Date: 20140506
  Transmission Date: 20141212
  Serious: Yes (Hospitalization, Other)
  Sender: FDA-Public Use
  Company Number: US-ASTRAZENECA-2010SE56356

PATIENT
  Age: 87 Year
  Sex: Female
  Weight: 65.8 kg

DRUGS (5)
  1. CRESTOR [Suspect]
     Indication: TYPE IIA HYPERLIPIDAEMIA
     Route: 048
     Dates: start: 2002
  2. ZOCOR [Concomitant]
  3. GABAPENTIN [Concomitant]
     Indication: NEUROPATHY PERIPHERAL
  4. WARFARIN SODIUM [Concomitant]
     Indication: ANTICOAGULANT THERAPY
  5. WARFARIN SODIUM [Concomitant]
     Indication: ANTICOAGULANT THERAPY
     Dates: start: 201403

REACTIONS (17)
  - Cataract [Unknown]
  - Atrial fibrillation [Unknown]
  - Transient ischaemic attack [Unknown]
  - Visual impairment [Not Recovered/Not Resolved]
  - Visual acuity reduced [Not Recovered/Not Resolved]
  - Aphasia [Unknown]
  - Cerebrovascular accident [Unknown]
  - Hypercholesterolaemia [Unknown]
  - Hypertension [Unknown]
  - Dehydration [Unknown]
  - Rectal haemorrhage [Unknown]
  - Migraine [Unknown]
  - Confusional state [Not Recovered/Not Resolved]
  - Anxiety [Not Recovered/Not Resolved]
  - Body height decreased [Not Recovered/Not Resolved]
  - Asthenia [Unknown]
  - Drug dose omission [Recovered/Resolved]
